FAERS Safety Report 11163799 (Version 3)
Quarter: 2015Q3

REPORT INFORMATION
  Report Type: Spontaneous
  Country: US (occurrence: US)
  Receive Date: 20150604
  Receipt Date: 20150709
  Transmission Date: 20151125
  Serious: Yes (Life-Threatening, Hospitalization, Other)
  Sender: FDA-Public Use
  Company Number: US-JNJFOC-20150601639

PATIENT
  Age: 74 Year
  Sex: Male
  Weight: 125 kg

DRUGS (1)
  1. IMBRUVICA [Suspect]
     Active Substance: IBRUTINIB
     Indication: CHRONIC LYMPHOCYTIC LEUKAEMIA
     Route: 048
     Dates: start: 20150202, end: 20150409

REACTIONS (6)
  - Acute kidney injury [Unknown]
  - Pulmonary oedema [Unknown]
  - Atrial fibrillation [Recovered/Resolved]
  - Inappropriate schedule of drug administration [Recovered/Resolved]
  - Dehydration [Recovered/Resolved]
  - Septic shock [Recovered/Resolved]

NARRATIVE: CASE EVENT DATE: 20150202
